FAERS Safety Report 16456064 (Version 3)
Quarter: 2019Q4

REPORT INFORMATION
  Report Type: Report from Study
  Country: JP (occurrence: JP)
  Receive Date: 20190620
  Receipt Date: 20191206
  Transmission Date: 20200122
  Serious: Yes (Hospitalization, Other)
  Sender: FDA-Public Use
  Company Number: JP-ACTELION-A-CH2016-147278

PATIENT
  Age: 13 Year
  Sex: Female

DRUGS (15)
  1. WARFARIN [Concomitant]
     Active Substance: WARFARIN
  2. ENALAPRIL [Concomitant]
     Active Substance: ENALAPRIL
  3. OPSUMIT [Suspect]
     Active Substance: MACITENTAN
     Dosage: 5 MG, BID
     Route: 048
     Dates: start: 20171102
  4. BERAPROST [Concomitant]
     Active Substance: BERAPROST
  5. SELARA [Concomitant]
     Active Substance: EPLERENONE
  6. CANDESARTAN. [Concomitant]
     Active Substance: CANDESARTAN
  7. PREDONINE [Suspect]
     Active Substance: PREDNISOLONE
     Indication: PROTEIN-LOSING GASTROENTEROPATHY
     Dosage: 15 MG, QD
     Route: 048
     Dates: start: 20160512
  8. ALFACALCIDOL [Concomitant]
     Active Substance: ALFACALCIDOL
  9. OPSUMIT [Suspect]
     Active Substance: MACITENTAN
     Indication: PULMONARY ARTERIAL HYPERTENSION
     Dosage: 5 MG, QD
     Route: 048
     Dates: start: 20160607, end: 20170124
  10. FUROSEMIDE. [Concomitant]
     Active Substance: FUROSEMIDE
  11. BAYASPIRIN [Concomitant]
     Active Substance: ASPIRIN
  12. OPSUMIT [Suspect]
     Active Substance: MACITENTAN
     Dosage: 10 MG, QD
     Route: 048
     Dates: start: 20170125, end: 20171101
  13. ALDACTONE A [Concomitant]
     Active Substance: SPIRONOLACTONE
  14. ADCIRCA [Concomitant]
     Active Substance: TADALAFIL
  15. AZOSEMIDE [Concomitant]
     Active Substance: AZOSEMIDE

REACTIONS (6)
  - White blood cell count decreased [Not Recovered/Not Resolved]
  - Anaemia [Not Recovered/Not Resolved]
  - Pain [Recovering/Resolving]
  - Platelet count decreased [Not Recovered/Not Resolved]
  - Osteoporosis [Recovering/Resolving]
  - Spinal compression fracture [Recovering/Resolving]

NARRATIVE: CASE EVENT DATE: 20160811
